FAERS Safety Report 9259087 (Version 1)
Quarter: 2013Q2

REPORT INFORMATION
  Report Type: Spontaneous
  Country: CH (occurrence: CH)
  Receive Date: 20130426
  Receipt Date: 20130426
  Transmission Date: 20140414
  Serious: Yes (Hospitalization, Other)
  Sender: FDA-Public Use
  Company Number: PHHY2013CH038998

PATIENT
  Age: 82 Year
  Sex: Female
  Weight: 65.7 kg

DRUGS (14)
  1. CO-AMOXI-MEPHA [Suspect]
     Indication: URINARY TRACT INFECTION
     Dosage: 625 MG, TID
     Route: 048
     Dates: start: 20120710, end: 20120716
  2. PANTOZOL [Interacting]
     Dosage: 40 MG, QD
     Route: 048
  3. METHOTREXATE FARMOS//METHOTREXATE [Interacting]
     Indication: RHEUMATOID ARTHRITIS
     Dosage: 10 MG, QW
     Route: 048
     Dates: start: 20120312, end: 20120709
  4. LUDIOMIL [Concomitant]
     Route: 048
  5. PRADAXA [Concomitant]
     Indication: HYPERTENSIVE HEART DISEASE
     Route: 048
  6. ACIDUM FOLICUM STREULI [Concomitant]
     Dosage: 5 MG, THRICE IN 1 WEEK
     Route: 048
  7. BECOZYM [Concomitant]
     Dosage: 1 DF, QD
     Route: 048
  8. DIGOXIN [Concomitant]
     Indication: HYPERTENSIVE HEART DISEASE
     Dosage: 0.25 MG, QD
     Route: 048
  9. LYRICA [Concomitant]
     Dosage: 25 MG, BID
     Route: 048
  10. NOVALGIN [Concomitant]
     Dosage: 60 GTT
     Route: 048
  11. TORASEMID SANDOZ ECO [Concomitant]
     Dosage: 5 MG, QD
     Route: 048
  12. VALIUM [Concomitant]
     Dosage: 5 MG, QD
     Route: 048
  13. DUROGESIC [Concomitant]
     Dosage: 50 DF, UNK
     Route: 003
  14. TRAMADOL [Concomitant]
     Dosage: 5 GTT, UNK
     Route: 048

REACTIONS (8)
  - Stomatitis [Recovered/Resolved]
  - Mucosal haemorrhage [Recovered/Resolved]
  - Mucosal inflammation [Recovered/Resolved]
  - Pancytopenia [Recovered/Resolved]
  - Anaemia [Recovered/Resolved]
  - Thrombocytopenia [Recovered/Resolved]
  - Neutropenia [Recovered/Resolved]
  - Drug interaction [Unknown]
